FAERS Safety Report 7204550-4 (Version None)
Quarter: 2010Q4

REPORT INFORMATION
  Report Type: 
  Country: None (occurrence: None)
  Receive Date: 20101230
  Receipt Date: 20101217
  Transmission Date: 20110411
  Serious: Yes (Other)
  Sender: FDA-Public Use
  Company Number: PHHY2010CA71702

PATIENT
  Sex: Male

DRUGS (2)
  1. SANDOSTATIN LAR [Suspect]
     Indication: GASTROINTESTINAL CANCER METASTATIC
     Dosage: 30 MG EVERY 4 WEEKS
     Route: 030
     Dates: start: 20101019
  2. SANDOSTATIN LAR [Suspect]
     Dosage: 30 MG, QMO
     Route: 030

REACTIONS (7)
  - ABDOMINAL PAIN UPPER [None]
  - ASTHENIA [None]
  - BLOOD GLUCOSE INCREASED [None]
  - DRY EYE [None]
  - NAUSEA [None]
  - RETCHING [None]
  - VISUAL IMPAIRMENT [None]
